FAERS Safety Report 10794469 (Version 3)
Quarter: 2015Q1

REPORT INFORMATION
  Report Type: Spontaneous
  Country: US (occurrence: US)
  Receive Date: 20150213
  Receipt Date: 20150331
  Transmission Date: 20150721
  Serious: Yes (Hospitalization)
  Sender: FDA-Public Use
  Company Number: US-UNITED THERAPEUTICS-UNT-2015-001522

PATIENT
  Age: 63 Year
  Sex: Female
  Weight: 73.47 kg

DRUGS (2)
  1. REMODULIN [Suspect]
     Active Substance: TREPROSTINIL
     Dosage: 0.079 ?G/KG, CONTINUING
     Route: 041
     Dates: start: 20051222
  2. REMODULIN [Suspect]
     Active Substance: TREPROSTINIL
     Indication: PULMONARY ARTERIAL HYPERTENSION
     Dosage: 0.079 ?G/KG, CONTINUING
     Route: 041
     Dates: start: 20051222

REACTIONS (7)
  - Pulmonary arterial hypertension [Unknown]
  - Dyspnoea [Unknown]
  - Nervousness [Unknown]
  - Stress [Unknown]
  - Asthenia [Unknown]
  - Gait disturbance [Unknown]
  - Bronchitis [Unknown]

NARRATIVE: CASE EVENT DATE: 201412
